FAERS Safety Report 6542637-X (Version None)
Quarter: 2010Q1

REPORT INFORMATION
  Report Type: 
  Country: None (occurrence: None)
  Receive Date: 20100119
  Receipt Date: 20100107
  Transmission Date: 20100710
  Serious: Yes (Hospitalization)
  Sender: FDA-Public Use
  Company Number: FR-ELI_LILLY_AND_COMPANY-FR201001001282

PATIENT
  Age: 41 Year
  Sex: Female

DRUGS (5)
  1. CYMBALTA [Suspect]
     Dosage: 60 MG, DAILY (1/D)
     Route: 048
     Dates: start: 20091005, end: 20091215
  2. TERCIAN [Concomitant]
  3. LEXOMIL [Concomitant]
  4. NOCTRAN 10 [Concomitant]
  5. OESTROGEST [Concomitant]
     Indication: CONTRACEPTION

REACTIONS (10)
  - BILIRUBIN CONJUGATED INCREASED [None]
  - BLOOD ALKALINE PHOSPHATASE INCREASED [None]
  - BLOOD BILIRUBIN INCREASED [None]
  - BLOOD CHOLESTEROL INCREASED [None]
  - BLOOD TRIGLYCERIDES INCREASED [None]
  - JAUNDICE [None]
  - PROTHROMBIN LEVEL DECREASED [None]
  - PRURITUS [None]
  - SERUM FERRITIN INCREASED [None]
  - TRANSAMINASES INCREASED [None]
